FAERS Safety Report 11220439 (Version 1)
Quarter: 2015Q2

REPORT INFORMATION
  Report Type: Spontaneous
  Country: US (occurrence: None)
  Receive Date: 20150625
  Receipt Date: 20150625
  Transmission Date: 20150821
  Serious: Yes (Hospitalization, Disabling)
  Sender: FDA-Public Use
  Company Number: None

PATIENT
  Age: 49 Year
  Sex: Female
  Weight: 70.31 kg

DRUGS (4)
  1. NATURE-THROID [Concomitant]
     Active Substance: THYROID, PORCINE
  2. SYNTHROID [Concomitant]
     Active Substance: LEVOTHYROXINE SODIUM
  3. PRIVIGEN [Suspect]
     Active Substance: HUMAN IMMUNOGLOBULIN G
     Indication: AUTOIMMUNE DISORDER
     Dosage: 3 DAY INFUSION INTO A VEIN
     Route: 042
     Dates: start: 20140429, end: 20140430
  4. PRIVIGEN [Suspect]
     Active Substance: HUMAN IMMUNOGLOBULIN G
     Indication: DERMATOMYOSITIS
     Dosage: 3 DAY INFUSION INTO A VEIN
     Route: 042
     Dates: start: 20140429, end: 20140430

REACTIONS (4)
  - Headache [None]
  - Haemolytic anaemia [None]
  - Meningitis aseptic [None]
  - Malaise [None]

NARRATIVE: CASE EVENT DATE: 20140429
